FAERS Safety Report 8949531 (Version 2)
Quarter: 2012Q4

REPORT INFORMATION
  Report Type: 
  Country: ES (occurrence: ES)
  Receive Date: 20121206
  Receipt Date: 20121221
  Transmission Date: 20130627
  Serious: Yes (Hospitalization)
  Sender: FDA-Public Use
  Company Number: ES-ALLERGAN-1216503US

PATIENT
  Age: 56 Year
  Sex: Female

DRUGS (3)
  1. GANFORT [Suspect]
     Indication: INTRAOCULAR PRESSURE HIGH
     Dosage: 1 Gtt OU, qpm
     Route: 047
     Dates: start: 201206
  2. ADIRO [Concomitant]
     Indication: DRUG USE FOR UNKNOWN INDICATION
  3. SOJA LECITHIN [Concomitant]
     Indication: DRUG USE FOR UNKNOWN INDICATION

REACTIONS (5)
  - Labyrinthitis [Recovering/Resolving]
  - Alopecia [Unknown]
  - Hypertension [Unknown]
  - Diarrhoea [Recovered/Resolved]
  - Wrong technique in drug usage process [Unknown]
